FAERS Safety Report 4603977-4 (Version None)
Quarter: 2005Q1

REPORT INFORMATION
  Report Type: 
  Country: None (occurrence: None)
  Receive Date: 20050308
  Receipt Date: 20041210
  Transmission Date: 20050727
  Serious: Yes (Life-Threatening, Hospitalization)
  Sender: FDA-Public Use
  Company Number: ENT 2004-0210

PATIENT
  Age: 78 Year
  Sex: Female

DRUGS (3)
  1. COMTAN [Suspect]
     Indication: PARKINSON'S DISEASE
     Dosage: 800-1000 MG ORAL
     Route: 048
     Dates: start: 20041001
  2. AMANTADINE [Concomitant]
  3. SINEMET [Concomitant]

REACTIONS (4)
  - BRONCHITIS [None]
  - NEUROLEPTIC MALIGNANT SYNDROME [None]
  - PNEUMONIA [None]
  - RESPIRATORY DISORDER [None]
